FAERS Safety Report 7564862-1 (Version None)
Quarter: 2011Q2

REPORT INFORMATION
  Report Type: 
  Country: None (occurrence: None)
  Receive Date: 20110622
  Receipt Date: 20110207
  Transmission Date: 20111010
  Serious: Yes (Death)
  Sender: FDA-Public Use
  Company Number: US-MYLANLABS-2011S1000987

PATIENT
  Age: 51 Year
  Sex: Male
  Weight: 129.28 kg

DRUGS (6)
  1. CITALOPRAM HYDROBROMIDE [Concomitant]
  2. CLONAZEPAM [Concomitant]
  3. BENZTROPINE MESYLATE [Concomitant]
  4. ATENOLOL [Concomitant]
  5. CLOZAPINE [Suspect]
     Indication: SCHIZOPHRENIA
     Route: 048
     Dates: start: 20060901, end: 20110101
  6. HALOPERIDOL [Concomitant]

REACTIONS (1)
  - DEATH [None]
